FAERS Safety Report 7553072-X (Version None)
Quarter: 2011Q2

REPORT INFORMATION
  Report Type: 
  Country: None (occurrence: None)
  Receive Date: 20110616
  Receipt Date: 20110607
  Transmission Date: 20111010
  Serious: Yes (Other)
  Sender: FDA-Public Use
  Company Number: JP-UCBSA-030303

PATIENT
  Sex: Male

DRUGS (2)
  1. XYZAL [Suspect]
     Route: 048
     Dates: start: 20110310, end: 20110327
  2. EQUA [Concomitant]
     Route: 048

REACTIONS (1)
  - WHITE BLOOD CELL COUNT DECREASED [None]
